FAERS Safety Report 19948352 (Version 8)
Quarter: 2022Q3

REPORT INFORMATION
  Report Type: Report from Study
  Country: CO (occurrence: CO)
  Receive Date: 20211012
  Receipt Date: 20220819
  Transmission Date: 20221026
  Serious: Yes (Other)
  Sender: FDA-Public Use
  Company Number: CO-TAKEDA-CO201849721

PATIENT
  Age: 43 Year
  Sex: Female
  Weight: 69 kg

DRUGS (18)
  1. ICATIBANT [Suspect]
     Active Substance: ICATIBANT ACETATE
     Indication: Hereditary angioedema
     Dosage: 30 MILLIGRAM, Q6HR
     Route: 058
     Dates: start: 20171101
  2. ICATIBANT [Suspect]
     Active Substance: ICATIBANT ACETATE
     Indication: Hereditary angioedema
     Dosage: 30 MILLIGRAM, Q6HR
     Route: 058
     Dates: start: 20171101
  3. ICATIBANT [Suspect]
     Active Substance: ICATIBANT ACETATE
     Dosage: UNK UNK, MONTHLY
     Route: 058
     Dates: start: 20171101
  4. ICATIBANT [Suspect]
     Active Substance: ICATIBANT ACETATE
     Dosage: UNK UNK, MONTHLY
     Route: 058
     Dates: start: 20171101
  5. ICATIBANT [Suspect]
     Active Substance: ICATIBANT ACETATE
     Dosage: UNK
     Route: 058
     Dates: start: 20171101
  6. ICATIBANT [Suspect]
     Active Substance: ICATIBANT ACETATE
     Dosage: UNK
     Route: 058
     Dates: start: 20171101
  7. ICATIBANT [Suspect]
     Active Substance: ICATIBANT ACETATE
     Dosage: UNK
     Route: 058
     Dates: start: 20171101
  8. ICATIBANT [Suspect]
     Active Substance: ICATIBANT ACETATE
     Dosage: UNK
     Route: 058
     Dates: start: 20171101
  9. ICATIBANT [Suspect]
     Active Substance: ICATIBANT ACETATE
     Dosage: 60 MILLIGRAM
     Route: 058
     Dates: start: 20181223
  10. ICATIBANT [Suspect]
     Active Substance: ICATIBANT ACETATE
     Dosage: 60 MILLIGRAM
     Route: 058
     Dates: start: 20181223
  11. ICATIBANT [Suspect]
     Active Substance: ICATIBANT ACETATE
     Dosage: 60 MILLIGRAM
     Route: 058
     Dates: start: 20190626, end: 20190626
  12. ICATIBANT [Suspect]
     Active Substance: ICATIBANT ACETATE
     Dosage: 60 MILLIGRAM
     Route: 058
     Dates: start: 20190626, end: 20190626
  13. ICATIBANT [Suspect]
     Active Substance: ICATIBANT ACETATE
     Dosage: 60 MILLIGRAM
     Route: 058
     Dates: start: 20190728, end: 20190728
  14. ICATIBANT [Suspect]
     Active Substance: ICATIBANT ACETATE
     Dosage: 60 MILLIGRAM
     Route: 058
     Dates: start: 20190728, end: 20190728
  15. ICATIBANT [Suspect]
     Active Substance: ICATIBANT ACETATE
     Dosage: 60 MILLIGRAM
     Route: 058
     Dates: start: 20190825, end: 20190825
  16. ICATIBANT [Suspect]
     Active Substance: ICATIBANT ACETATE
     Dosage: 60 MILLIGRAM
     Route: 058
     Dates: start: 20190825, end: 20190825
  17. ICATIBANT [Suspect]
     Active Substance: ICATIBANT ACETATE
     Dosage: 30 MILLIGRAM
     Route: 058
     Dates: start: 20191118
  18. ICATIBANT [Suspect]
     Active Substance: ICATIBANT ACETATE
     Dosage: 30 MILLIGRAM
     Route: 058
     Dates: start: 20191118

REACTIONS (8)
  - Hyperprolactinaemia [Unknown]
  - Weight decreased [Unknown]
  - Weight increased [Unknown]
  - Body height increased [Unknown]
  - Breast disorder [Unknown]
  - Retracted nipple [Unknown]
  - Tooth disorder [Unknown]
  - Inappropriate schedule of product administration [Unknown]

NARRATIVE: CASE EVENT DATE: 20210713
